FAERS Safety Report 5339947-0 (Version None)
Quarter: 2007Q2

REPORT INFORMATION
  Report Type: 
  Country: None (occurrence: None)
  Receive Date: 20070529
  Receipt Date: 20070511
  Transmission Date: 20071010
  Serious: Yes (Hospitalization)
  Sender: FDA-Public Use
  Company Number: 2007RR-07555

PATIENT
  Age: 71 Year
  Sex: Male

DRUGS (8)
  1. SIMVASTATIN [Suspect]
     Dosage: 40 MG, QD
  2. FUSIDIC ACID [Suspect]
     Dosage: 250 MG, TID
  3. RIFAMPICIN [Concomitant]
  4. METOPROLOL TARTRATE [Concomitant]
  5. IRBESARTAN [Concomitant]
  6. FUROSEMIDE [Concomitant]
  7. WARFARIN SODIUM [Concomitant]
  8. PARACETAMOL (ACETAMINOPHEN/PARACETAMOL) [Concomitant]

REACTIONS (12)
  - ABDOMINAL DISCOMFORT [None]
  - ABDOMINAL PAIN UPPER [None]
  - DEHYDRATION [None]
  - DRUG INTERACTION [None]
  - GRAFT INFECTION [None]
  - HEPATITIS [None]
  - IMPAIRED HEALING [None]
  - MOBILITY DECREASED [None]
  - NAUSEA [None]
  - RENAL IMPAIRMENT [None]
  - RHABDOMYOLYSIS [None]
  - STAPHYLOCOCCAL INFECTION [None]
